FAERS Safety Report 14875405 (Version 1)
Quarter: 2018Q2

REPORT INFORMATION
  Report Type: Spontaneous
  Country: US (occurrence: US)
  Receive Date: 20180424
  Receipt Date: 20180424
  Transmission Date: 20180711
  Serious: Yes (Other)
  Sender: FDA-Public Use
  Company Number: None

PATIENT
  Age: 52 Year
  Sex: Male

DRUGS (6)
  1. VYVANSE [Suspect]
     Active Substance: LISDEXAMFETAMINE DIMESYLATE
     Indication: ATTENTION DEFICIT/HYPERACTIVITY DISORDER
     Route: 048
  2. CLONAZEPAM 0.5 MG TWICE DAILY [Concomitant]
  3. VYVANSE [Suspect]
     Active Substance: LISDEXAMFETAMINE DIMESYLATE
     Indication: COGNITIVE DISORDER
     Route: 048
  4. FLUCONAZOLE 200 MG DAILY [Concomitant]
  5. OLANZAPINE 7.5 MG AT BEDTIME [Concomitant]
  6. FLUOXETINE [Suspect]
     Active Substance: FLUOXETINE HYDROCHLORIDE
     Indication: DEPRESSION
     Route: 048

REACTIONS (13)
  - Dysarthria [None]
  - Drug interaction [None]
  - Speech disorder [None]
  - Insomnia [None]
  - Choreoathetosis [None]
  - Aggression [None]
  - Chorea [None]
  - Physical assault [None]
  - Thinking abnormal [None]
  - Fall [None]
  - Psychomotor hyperactivity [None]
  - Huntington^s disease [None]
  - Coordination abnormal [None]

NARRATIVE: CASE EVENT DATE: 20161115
